FAERS Safety Report 18526446 (Version 3)
Quarter: 2021Q2

REPORT INFORMATION
  Report Type: Report from Study
  Country: US (occurrence: US)
  Receive Date: 20201120
  Receipt Date: 20210530
  Transmission Date: 20210717
  Serious: Yes (Hospitalization)
  Sender: FDA-Public Use
  Company Number: US-JNJFOC-20201131362

PATIENT
  Sex: Female
  Weight: 23.8 kg

DRUGS (38)
  1. PIPERACILLIN AND TAZOBACTAM [Concomitant]
     Active Substance: PIPERACILLIN SODIUM\TAZOBACTAM SODIUM
  2. PROPOFOL. [Concomitant]
     Active Substance: PROPOFOL
  3. ENOXAPARIN [Concomitant]
     Active Substance: ENOXAPARIN
  4. KETOROLAC [Concomitant]
     Active Substance: KETOROLAC TROMETHAMINE
  5. NYSTATIN. [Concomitant]
     Active Substance: NYSTATIN
  6. LOPERAMIDE [Concomitant]
     Active Substance: LOPERAMIDE
  7. AZATHIOPRINE. [Concomitant]
     Active Substance: AZATHIOPRINE
  8. POLYETHYLENE GLYCOL COMPOUND [Concomitant]
  9. PHENOL. [Concomitant]
     Active Substance: PHENOL
  10. IBUPROFEN. [Concomitant]
     Active Substance: IBUPROFEN
  11. AMOXICILLIN. [Concomitant]
     Active Substance: AMOXICILLIN
  12. LACTATED RINGERS SOLUTION [Concomitant]
     Active Substance: CALCIUM CHLORIDE\POTASSIUM CHLORIDE\SODIUM CHLORIDE\SODIUM LACTATE
  13. MIDAZOLAM. [Concomitant]
     Active Substance: MIDAZOLAM
  14. OXYCODONE [Concomitant]
     Active Substance: OXYCODONE
  15. SUGAMMADEX [Concomitant]
     Active Substance: SUGAMMADEX
  16. TRIAMCINOLONE ACETONIDE. [Concomitant]
     Active Substance: TRIAMCINOLONE ACETONIDE
  17. GLYCOLAX [Concomitant]
     Active Substance: POLYETHYLENE GLYCOL 3350
  18. MORPHINE [Concomitant]
     Active Substance: MORPHINE
  19. ROCURONIUM [Concomitant]
     Active Substance: ROCURONIUM BROMIDE
  20. PHENYLEPHRINE [Concomitant]
     Active Substance: PHENYLEPHRINE HYDROCHLORIDE
  21. TURMERIC [CURCUMA LONGA RHIZOME] [Concomitant]
     Active Substance: HERBALS\TURMERIC
  22. ACETAMINOPHEN. [Concomitant]
     Active Substance: ACETAMINOPHEN
  23. FENTANYL. [Concomitant]
     Active Substance: FENTANYL
  24. POLYMYXIN B SULFATE;TRIMETHOPRIM [Concomitant]
  25. 5?ASA [Concomitant]
     Active Substance: MESALAMINE
     Route: 048
  26. RANITIDINE. [Concomitant]
     Active Substance: RANITIDINE
  27. RETINOL [Concomitant]
     Active Substance: RETINOL
  28. BUDESONIDE. [Concomitant]
     Active Substance: BUDESONIDE
  29. ONDANSETRON [Concomitant]
     Active Substance: ONDANSETRON
  30. HYDROCORTISONE. [Concomitant]
     Active Substance: HYDROCORTISONE
  31. INFLIXIMAB, RECOMBINANT [Suspect]
     Active Substance: INFLIXIMAB
     Indication: COLITIS ULCERATIVE
     Route: 042
     Dates: start: 201612, end: 20190613
  32. IOHEXOL [Concomitant]
     Active Substance: IOHEXOL
  33. BUPIVACAINE. [Concomitant]
     Active Substance: BUPIVACAINE
  34. CHOLECALCIFEROL [Concomitant]
     Active Substance: CHOLECALCIFEROL
  35. DOXYCYCLINE HYCLATE. [Concomitant]
     Active Substance: DOXYCYCLINE HYCLATE
  36. METRONIDAZOLE. [Concomitant]
     Active Substance: METRONIDAZOLE
  37. SODIUM CHLORIDE. [Concomitant]
     Active Substance: SODIUM CHLORIDE
  38. METHYLPREDNISOLONE. [Concomitant]
     Active Substance: METHYLPREDNISOLONE

REACTIONS (1)
  - Anal fistula [Recovered/Resolved]

NARRATIVE: CASE EVENT DATE: 2019
